FAERS Safety Report 22033309 (Version 2)
Quarter: 2023Q1

REPORT INFORMATION
  Report Type: Spontaneous
  Country: CA (occurrence: CA)
  Receive Date: 20230224
  Receipt Date: 20230314
  Transmission Date: 20230418
  Serious: Yes (Hospitalization, Other)
  Sender: FDA-Public Use
  Company Number: CA-002147023-NVSC2023CA038828

PATIENT
  Age: 61 Year
  Sex: Male

DRUGS (4)
  1. XOLAIR [Suspect]
     Active Substance: OMALIZUMAB
     Indication: Product used for unknown indication
     Dosage: UNK
     Route: 065
  2. RUPATADINE [Concomitant]
     Active Substance: RUPATADINE
     Indication: Product used for unknown indication
     Dosage: 5 MG, QD AT 9:00
  3. ACETAMINOPHEN [Concomitant]
     Active Substance: ACETAMINOPHEN
     Indication: Pleuritic pain
     Dosage: 650 MG, PRN (EVERY FOUR TO SIX HOURS) (2 WEEKS REPEATS)
  4. KETORAC [Concomitant]
     Indication: Pleuritic pain
     Dosage: 10 MG, Q6H (5 DAYS REPEATS: 0)
     Dates: start: 20230206

REACTIONS (6)
  - Deep vein thrombosis [Unknown]
  - Pulmonary embolism [Unknown]
  - Back pain [Unknown]
  - Chest pain [Unknown]
  - Tachycardia [Unknown]
  - Right ventricular failure [Unknown]

NARRATIVE: CASE EVENT DATE: 20230203
